FAERS Safety Report 7634721-4 (Version None)
Quarter: 2011Q3

REPORT INFORMATION
  Report Type: 
  Country: None (occurrence: None)
  Receive Date: 20110726
  Receipt Date: 20110712
  Transmission Date: 20111222
  Serious: Yes (Other)
  Sender: FDA-Public Use
  Company Number: US-AMGEN-TCS395233

PATIENT
  Sex: Female

DRUGS (2)
  1. ENBREL [Suspect]
     Indication: PSORIASIS
     Dosage: 50 MG, QWK
     Dates: start: 20050201
  2. ENBREL [Suspect]
     Indication: PSORIATIC ARTHROPATHY

REACTIONS (8)
  - BURNING SENSATION [None]
  - MACULAR DEGENERATION [None]
  - BREAST CELLULITIS [None]
  - PARAESTHESIA [None]
  - VISUAL IMPAIRMENT [None]
  - LYMPHOEDEMA [None]
  - HYPOAESTHESIA [None]
  - GLAUCOMA [None]
